FAERS Safety Report 5284089-6 (Version None)
Quarter: 2007Q1

REPORT INFORMATION
  Report Type: 
  Country: None (occurrence: None)
  Receive Date: 20070327
  Receipt Date: 20070308
  Transmission Date: 20070707
  Serious: Yes (Other)
  Sender: FDA-Public Use
  Company Number: DSA_29558_2007

PATIENT
  Age: 65 Year
  Sex: Female
  Weight: 41.7309 kg

DRUGS (13)
  1. CARDIZEM LA [Suspect]
     Indication: RAYNAUD'S PHENOMENON
     Dosage: 360 MG Q DAY PO
     Route: 048
     Dates: start: 20070208, end: 20070301
  2. CARDIZEM LA [Suspect]
     Indication: RAYNAUD'S PHENOMENON
     Dosage: 360 MG Q DAY PO
     Route: 048
     Dates: start: 20070301
  3. TOPROL-XL [Concomitant]
  4. MORPHINE [Concomitant]
  5. NEXIUM [Concomitant]
  6. ACIPHEX [Concomitant]
  7. LIPITOR [Concomitant]
  8. PREMIQUE [Concomitant]
  9. ATARAX (GENERIC) [Concomitant]
  10. WELLBUTRIN SR [Concomitant]
  11. BENEFIBER [Concomitant]
  12. SENOKOTG (GENERIC) [Concomitant]
  13. COLACE (GENERIC) [Concomitant]

REACTIONS (7)
  - ABNORMAL BEHAVIOUR [None]
  - AMNESIA [None]
  - FATIGUE [None]
  - FEELING ABNORMAL [None]
  - NERVOUSNESS [None]
  - POLLAKIURIA [None]
  - TRANSIENT ISCHAEMIC ATTACK [None]
